FAERS Safety Report 7048567-1 (Version None)
Quarter: 2010Q4

REPORT INFORMATION
  Report Type: 
  Country: None (occurrence: None)
  Receive Date: 20101008
  Receipt Date: 20100924
  Transmission Date: 20110411
  Serious: Yes (Hospitalization)
  Sender: FDA-Public Use
  Company Number: 015605

PATIENT
  Sex: Female
  Weight: 65.6808 kg

DRUGS (6)
  1. CIMZIA [Suspect]
     Indication: CROHN'S DISEASE
     Dosage: (400 MG (200 MG X 2) SUBCUTANEOUS)
     Route: 058
     Dates: start: 20100301
  2. PREDNISONE [Concomitant]
  3. XANAX [Concomitant]
  4. PRILOSEC [Concomitant]
  5. TRAMADOL [Concomitant]
  6. PROMETHAZINE [Concomitant]

REACTIONS (12)
  - APPENDICITIS [None]
  - ASTHENIA [None]
  - CONSTIPATION [None]
  - CROHN'S DISEASE [None]
  - DIZZINESS [None]
  - HAEMATOCHEZIA [None]
  - HAEMATOCRIT [None]
  - HAEMOGLOBIN DECREASED [None]
  - HEART RATE DECREASED [None]
  - PLATELET COUNT INCREASED [None]
  - SERUM FERRITIN DECREASED [None]
  - WHITE BLOOD CELL COUNT INCREASED [None]
